FAERS Safety Report 4986349-2 (Version None)
Quarter: 2006Q2

REPORT INFORMATION
  Report Type: 
  Country: None (occurrence: None)
  Receive Date: 20060424
  Receipt Date: 20060411
  Transmission Date: 20061013
  Serious: No
  Sender: FDA-Public Use
  Company Number: TPA2006A00640

PATIENT
  Age: 47 Year
  Sex: Female
  Weight: 65.7716 kg

DRUGS (6)
  1. ACTOS [Suspect]
     Indication: GLUCOSE TOLERANCE IMPAIRED
     Dosage: SEE IMAGE
     Route: 048
     Dates: start: 20050411, end: 20050611
  2. ACTOS [Suspect]
     Indication: GLUCOSE TOLERANCE IMPAIRED
     Dosage: SEE IMAGE
     Route: 048
     Dates: start: 20051001, end: 20060201
  3. METFORMIN [Concomitant]
  4. CYTOMEL [Concomitant]
  5. ALLEGRA [Concomitant]
  6. FLONASE [Concomitant]

REACTIONS (13)
  - ABDOMINAL DISTENSION [None]
  - BLOOD PRESSURE INCREASED [None]
  - BLOOD THYROID STIMULATING HORMONE INCREASED [None]
  - DRUG DISPENSING ERROR [None]
  - FATIGUE [None]
  - HEPATIC ENZYME INCREASED [None]
  - MUSCULOSKELETAL CHEST PAIN [None]
  - OVARIAN CYST [None]
  - PAIN [None]
  - PHARMACEUTICAL PRODUCT COMPLAINT [None]
  - THINKING ABNORMAL [None]
  - WEIGHT INCREASED [None]
  - WRONG DRUG ADMINISTERED [None]
